FAERS Safety Report 13199504 (Version 10)
Quarter: 2018Q4

REPORT INFORMATION
  Report Type: Spontaneous
  Country: US (occurrence: US)
  Receive Date: 20170208
  Receipt Date: 20181029
  Transmission Date: 20190204
  Serious: Yes (Life-Threatening, Other)
  Sender: FDA-Public Use
  Company Number: US-BRISTOL-MYERS SQUIBB COMPANY-BMS-2017-007462

PATIENT
  Sex: Female
  Weight: 86.62 kg

DRUGS (3)
  1. GLUCOVANCE [Suspect]
     Active Substance: GLYBURIDE\METFORMIN HYDROCHLORIDE
     Indication: PRODUCT USED FOR UNKNOWN INDICATION
     Dosage: 2 DF, BID
     Route: 048
     Dates: start: 1991
  2. GLUCOVANCE [Suspect]
     Active Substance: GLYBURIDE\METFORMIN HYDROCHLORIDE
     Indication: PRODUCT USED FOR UNKNOWN INDICATION
     Dosage: 2 DF, UNK
     Route: 048
  3. INSULIN [Suspect]
     Active Substance: INSULIN NOS
     Indication: BLOOD GLUCOSE INCREASED
     Route: 065

REACTIONS (46)
  - Breast cancer [Unknown]
  - Blood glucose abnormal [Unknown]
  - Urinary tract infection [Unknown]
  - Abdominal pain [Unknown]
  - Asthenia [Unknown]
  - Platelet count increased [Recovered/Resolved]
  - Hepatic pain [Unknown]
  - Anaphylactic reaction [Unknown]
  - Teeth brittle [Unknown]
  - Gastric disorder [Unknown]
  - Hepatomegaly [Unknown]
  - Splenomegaly [Unknown]
  - Weight decreased [Unknown]
  - Abdominal pain upper [Unknown]
  - Hepatotoxicity [Unknown]
  - Headache [Unknown]
  - Hypophagia [Unknown]
  - Hernia repair [Unknown]
  - Radiation injury [Unknown]
  - Middle insomnia [Unknown]
  - Ulcer [Unknown]
  - Migraine [Unknown]
  - Palpitations [Unknown]
  - Diarrhoea [Unknown]
  - Glycosylated haemoglobin increased [Unknown]
  - Malaise [Unknown]
  - Hypertension [Unknown]
  - Blood glucose increased [Unknown]
  - Pain [Unknown]
  - Drug ineffective [Unknown]
  - Eye swelling [Unknown]
  - Haemoglobin decreased [Unknown]
  - Gastrooesophageal reflux disease [Unknown]
  - Pain in extremity [Unknown]
  - Nausea [Unknown]
  - Product odour abnormal [Unknown]
  - Abdominal discomfort [Unknown]
  - Quality of life decreased [Unknown]
  - Hyperhidrosis [Unknown]
  - Throat irritation [Unknown]
  - Product taste abnormal [Unknown]
  - Eye pruritus [Unknown]
  - Flatulence [Unknown]
  - Vision blurred [Unknown]
  - Platelet count decreased [Recovered/Resolved]
  - Burning sensation [Unknown]

NARRATIVE: CASE EVENT DATE: 2010
